FAERS Safety Report 6524530-1 (Version None)
Quarter: 2010Q1

REPORT INFORMATION
  Report Type: 
  Country: None (occurrence: None)
  Receive Date: 20100104
  Receipt Date: 20091228
  Transmission Date: 20100710
  Serious: Yes (Other)
  Sender: FDA-Public Use
  Company Number: US-ROCHE-667643

PATIENT
  Sex: Female
  Weight: 64 kg

DRUGS (1)
  1. TAMIFLU [Suspect]
     Dosage: RECEIVED TWO DOSES.
     Route: 048
     Dates: start: 20091104, end: 20091105

REACTIONS (3)
  - ANGIOEDEMA [None]
  - DYSPNOEA [None]
  - OEDEMA MOUTH [None]
